FAERS Safety Report 9760285 (Version 1)
Quarter: 2013Q4

REPORT INFORMATION
  Report Type: Spontaneous
  Country: US (occurrence: US)
  Receive Date: 20131216
  Receipt Date: 20131216
  Transmission Date: 20140711
  Serious: Yes (Other)
  Sender: FDA-Public Use
  Company Number: US-GLAXOSMITHKLINE-A1051515A

PATIENT
  Age: 65 Year
  Sex: Female

DRUGS (2)
  1. ADVAIR [Suspect]
     Indication: PRODUCT USED FOR UNKNOWN INDICATION
     Route: 055
  2. HEART MEDICATION [Concomitant]

REACTIONS (3)
  - Cardiac operation [Unknown]
  - Malaise [Unknown]
  - Underdose [Unknown]
